FAERS Safety Report 6174704-7 (Version None)
Quarter: 2009Q2

REPORT INFORMATION
  Report Type: 
  Country: None (occurrence: None)
  Receive Date: 20090430
  Receipt Date: 20080821
  Transmission Date: 20091009
  Serious: No
  Sender: FDA-Public Use
  Company Number: US-ASTRAZENECA-2008UW17214

PATIENT
  Sex: Female

DRUGS (4)
  1. NEXIUM [Suspect]
     Indication: NON-CARDIAC CHEST PAIN
     Route: 048
     Dates: start: 20080815
  2. NEXIUM [Suspect]
     Indication: ERUCTATION
     Route: 048
     Dates: start: 20080815
  3. BLOOD PRESSURE PILLS [Concomitant]
  4. WATER PILLS [Concomitant]

REACTIONS (3)
  - ERYTHEMA [None]
  - PAIN [None]
  - URTICARIA [None]
